FAERS Safety Report 7065120-4 (Version None)
Quarter: 2010Q4

REPORT INFORMATION
  Report Type: 
  Country: None (occurrence: None)
  Receive Date: 20101022
  Receipt Date: 20101022
  Transmission Date: 20110411
  Serious: No
  Sender: FDA-Public Use
  Company Number: None

PATIENT
  Age: 75 Year
  Sex: Female
  Weight: 61.2356 kg

DRUGS (1)
  1. ARIMIDEX [Suspect]
     Indication: BREAST CANCER
     Dates: start: 20100627, end: 20101026

REACTIONS (20)
  - BACK PAIN [None]
  - BONE PAIN [None]
  - CERVICAL DISCHARGE [None]
  - CONSTIPATION [None]
  - HAEMORRHOIDS [None]
  - HEADACHE [None]
  - HOT FLUSH [None]
  - INSOMNIA [None]
  - LACRIMATION INCREASED [None]
  - MALAISE [None]
  - METASTATIC PAIN [None]
  - MOOD ALTERED [None]
  - MUSCLE TIGHTNESS [None]
  - MYALGIA [None]
  - NAIL DISORDER [None]
  - NAUSEA [None]
  - NIGHT SWEATS [None]
  - SINUSITIS [None]
  - STOMATITIS [None]
  - TENSION [None]
